FAERS Safety Report 18169306 (Version 1)
Quarter: 2020Q3

REPORT INFORMATION
  Report Type: Spontaneous
  Country: CA (occurrence: CA)
  Receive Date: 20200819
  Receipt Date: 20200819
  Transmission Date: 20201103
  Serious: Yes (Life-Threatening, Hospitalization)
  Sender: FDA-Public Use
  Company Number: CA-ACCORD-195826

PATIENT
  Age: 2 Month
  Sex: Female
  Weight: 5 kg

DRUGS (47)
  1. CISPLATIN. [Suspect]
     Active Substance: CISPLATIN
     Indication: HEPATOBLASTOMA
     Dosage: CISPLATIN INJECTION
     Route: 042
  2. CEFTRIAXONE. [Concomitant]
     Active Substance: CEFTRIAXONE
     Dosage: CEFTRIAXONE FOR INJECTION, USP, DOSAGE FORM: POWDER FOR SOLUTION INTRAMUSCULAR
     Route: 030
  3. DEXAMETHASONE. [Concomitant]
     Active Substance: DEXAMETHASONE
  4. DEXMEDETOMIDINE/DEXMEDETOMIDINE HYDROCHLORIDE [Concomitant]
     Active Substance: DEXMEDETOMIDINE HYDROCHLORIDE
  5. DIMENHYDRINATE. [Concomitant]
     Active Substance: DIMENHYDRINATE
     Dosage: DOSAGE FORM: LIQUID INTRAVENOUS
  6. MORPHINE [Concomitant]
     Active Substance: MORPHINE
  7. NIFEDIPINE. [Concomitant]
     Active Substance: NIFEDIPINE
  8. SODIUM [Concomitant]
     Active Substance: SODIUM
  9. VINCRISTINE [Suspect]
     Active Substance: VINCRISTINE
     Indication: HEPATOBLASTOMA
     Route: 042
  10. ONDANSETRON [Concomitant]
     Active Substance: ONDANSETRON
  11. SUCROSE [Concomitant]
     Active Substance: SUCROSE
     Dosage: SUCROSE TABLET (S 71)
  12. CISPLATIN. [Suspect]
     Active Substance: CISPLATIN
     Indication: HEPATOBLASTOMA
     Dosage: CISPLATIN INJECTION
     Route: 042
  13. DOXORUBICIN [Suspect]
     Active Substance: DOXORUBICIN
     Indication: HEPATOBLASTOMA
     Dosage: DOXORUBICIN HYDROCHLORIDE INJECTION
     Route: 042
  14. VINCRISTINE [Suspect]
     Active Substance: VINCRISTINE
     Indication: HEPATOBLASTOMA
     Route: 042
  15. VINCRISTINE [Suspect]
     Active Substance: VINCRISTINE
     Indication: HEPATOBLASTOMA
     Route: 042
  16. VINCRISTINE [Suspect]
     Active Substance: VINCRISTINE
     Indication: HEPATOBLASTOMA
     Route: 042
  17. PARACETAMOL [Concomitant]
     Active Substance: ACETAMINOPHEN
  18. METOCLOPRAMIDE. [Concomitant]
     Active Substance: METOCLOPRAMIDE
  19. SULFAMETHOXAZOLE/TRIMETHOPRIM [Concomitant]
     Active Substance: SULFAMETHOXAZOLE\TRIMETHOPRIM
  20. COLECALCIFEROL [Concomitant]
     Active Substance: CHOLECALCIFEROL
  21. MACROGOL [Concomitant]
     Active Substance: POLYETHYLENE GLYCOLS
  22. ZINC. [Concomitant]
     Active Substance: ZINC
  23. ZINECARD [Concomitant]
     Active Substance: DEXRAZOXANE HYDROCHLORIDE
     Dosage: DOSAGE FORM: POWDER FOR SOLUTION INTRAVENOUS
  24. ALTEPLASE. [Concomitant]
     Active Substance: ALTEPLASE
     Dosage: ALTEPLASE (T?PA),DOSAGE FORM: LIQUID INTRAVENOUS
  25. AMLODIPINE [Concomitant]
     Active Substance: AMLODIPINE BESYLATE
  26. GLUCOSE [Concomitant]
     Active Substance: DEXTROSE
  27. VINCRISTINE [Suspect]
     Active Substance: VINCRISTINE
     Indication: HEPATOBLASTOMA
     Route: 042
  28. FILGRASTIM [Concomitant]
     Active Substance: FILGRASTIM
  29. LANSOPRAZOLE. [Concomitant]
     Active Substance: LANSOPRAZOLE
  30. TOBRAMYCIN. [Concomitant]
     Active Substance: TOBRAMYCIN
  31. CISPLATIN. [Suspect]
     Active Substance: CISPLATIN
     Indication: HEPATOBLASTOMA
     Dosage: CISPLATIN INJECTION
     Route: 042
  32. DOXORUBICIN [Suspect]
     Active Substance: DOXORUBICIN
     Indication: HEPATOBLASTOMA
     Dosage: DOXORUBICIN HYDROCHLORIDE INJECTION
     Route: 042
  33. CEFOTAXIME [Concomitant]
     Active Substance: CEFOTAXIME SODIUM
  34. HEPARIN [Concomitant]
     Active Substance: HEPARIN SODIUM
  35. IRON [Concomitant]
     Active Substance: IRON
  36. MAGNESIUM [Concomitant]
     Active Substance: MAGNESIUM
  37. NYSTATIN. [Concomitant]
     Active Substance: NYSTATIN
  38. VINCRISTINE [Suspect]
     Active Substance: VINCRISTINE
     Indication: HEPATOBLASTOMA
     Route: 042
  39. VINCRISTINE [Suspect]
     Active Substance: VINCRISTINE
     Indication: HEPATOBLASTOMA
     Route: 042
  40. VINCRISTINE [Suspect]
     Active Substance: VINCRISTINE
     Indication: HEPATOBLASTOMA
     Route: 042
  41. VINCRISTINE [Suspect]
     Active Substance: VINCRISTINE
     Indication: HEPATOBLASTOMA
     Route: 042
  42. FUROSEMIDE. [Concomitant]
     Active Substance: FUROSEMIDE
  43. POTASSIUM [Concomitant]
     Active Substance: POTASSIUM
  44. VANCOMYCIN [Concomitant]
     Active Substance: VANCOMYCIN
  45. DOXORUBICIN [Suspect]
     Active Substance: DOXORUBICIN
     Indication: HEPATOBLASTOMA
     Dosage: DOXORUBICIN HYDROCHLORIDE INJECTION
     Route: 042
  46. VINCRISTINE [Suspect]
     Active Substance: VINCRISTINE
     Indication: HEPATOBLASTOMA
     Route: 042
  47. VINCRISTINE [Suspect]
     Active Substance: VINCRISTINE
     Indication: HEPATOBLASTOMA
     Route: 042

REACTIONS (7)
  - Respiratory failure [Recovered/Resolved]
  - Neutropenia [Recovered/Resolved]
  - Aplastic anaemia [Recovered/Resolved]
  - Pyrexia [Recovered/Resolved]
  - Transfusion [Recovered/Resolved]
  - Pancytopenia [Recovered/Resolved]
  - Off label use [Unknown]
